FAERS Safety Report 5017652-8 (Version None)
Quarter: 2006Q2

REPORT INFORMATION
  Report Type: 
  Country: None (occurrence: None)
  Receive Date: 20060605
  Receipt Date: 20050609
  Transmission Date: 20061013
  Serious: Yes (Disabling)
  Sender: FDA-Public Use
  Company Number: US-ROCHE-407293

PATIENT
  Age: 23 Year
  Sex: Female
  Weight: 81.6 kg

DRUGS (2)
  1. ACCUTANE [Suspect]
     Indication: ACNE
     Route: 048
     Dates: start: 20020118, end: 20020615
  2. CONTRACEPTIVE [Concomitant]
     Dosage: REPORTED DRUG NAME: ESTRA STEP
     Route: 048
     Dates: start: 20020115

REACTIONS (35)
  - ACUTE SINUSITIS [None]
  - ANXIETY [None]
  - BLOOD CHOLESTEROL INCREASED [None]
  - BLOOD TRIGLYCERIDES INCREASED [None]
  - CHEST PAIN [None]
  - COLITIS [None]
  - COLITIS ULCERATIVE [None]
  - CROHN'S DISEASE [None]
  - DEPRESSION [None]
  - DRY SKIN [None]
  - EPISTAXIS [None]
  - GASTROINTESTINAL DISORDER [None]
  - GASTROOESOPHAGEAL REFLUX DISEASE [None]
  - HAEMORRHOIDAL HAEMORRHAGE [None]
  - INFLAMMATORY BOWEL DISEASE [None]
  - INJURY [None]
  - INTERNAL INJURY [None]
  - INTESTINAL HAEMORRHAGE [None]
  - IRRITABILITY [None]
  - IRRITABLE BOWEL SYNDROME [None]
  - LIP DRY [None]
  - MOOD SWINGS [None]
  - NASAL DRYNESS [None]
  - NAUSEA [None]
  - NIGHT BLINDNESS [None]
  - PHARYNGITIS [None]
  - PRURITUS [None]
  - PYOGENIC GRANULOMA [None]
  - RASH [None]
  - RECTAL HAEMORRHAGE [None]
  - STRESS [None]
  - ULCER [None]
  - VISUAL DISTURBANCE [None]
  - WEIGHT DECREASED [None]
  - WEIGHT INCREASED [None]
